FAERS Safety Report 6384182-0 (Version None)
Quarter: 2009Q4

REPORT INFORMATION
  Report Type: 
  Country: None (occurrence: None)
  Receive Date: 20091001
  Receipt Date: 20090924
  Transmission Date: 20100525
  Serious: Yes (Hospitalization)
  Sender: FDA-Public Use
  Company Number: A0799759A

PATIENT
  Sex: Female
  Weight: 60 kg

DRUGS (10)
  1. ZOFRAN [Suspect]
     Indication: DRUG USE FOR UNKNOWN INDICATION
     Route: 048
  2. CP-751871 [Suspect]
     Indication: NON-SMALL CELL LUNG CANCER
     Dosage: 20MGK EVERY 3 WEEKS
     Route: 042
     Dates: start: 20090601
  3. CARBOPLATIN [Suspect]
     Indication: NON-SMALL CELL LUNG CANCER
     Route: 042
     Dates: start: 20090601
  4. PACLITAXEL [Suspect]
     Indication: NON-SMALL CELL LUNG CANCER
     Dosage: 200MGM2 EVERY 3 WEEKS
     Route: 042
     Dates: start: 20090601
  5. CALCIUM [Concomitant]
  6. VITAMIN D [Concomitant]
  7. VITAMIN B COMPLEX CAP [Concomitant]
  8. ASCORBIC ACID [Concomitant]
  9. DEXAMETHASONE 4MG TAB [Concomitant]
  10. MAXERAN [Concomitant]

REACTIONS (5)
  - ABDOMINAL PAIN LOWER [None]
  - CONSTIPATION [None]
  - LARGE INTESTINE PERFORATION [None]
  - NAUSEA [None]
  - VOMITING [None]
